FAERS Safety Report 12775973 (Version 1)
Quarter: 2016Q3

REPORT INFORMATION
  Report Type: Spontaneous
  Country: BR (occurrence: BR)
  Receive Date: 20160923
  Receipt Date: 20160923
  Transmission Date: 20161109
  Serious: Yes (Other)
  Sender: FDA-Public Use
  Company Number: BR-PFIZER INC-2016428871

PATIENT
  Age: 32 Year
  Sex: Female
  Weight: 63 kg

DRUGS (6)
  1. FRONTAL [Concomitant]
     Active Substance: ALPRAZOLAM
     Dosage: 0.5 MG, DAILY
     Route: 048
     Dates: start: 20160814, end: 20160821
  2. METICORTEN [Concomitant]
     Active Substance: PREDNISONE
     Dosage: 10 MG, DAILY DOSE
     Route: 048
     Dates: start: 20160816, end: 20160818
  3. NORVASC [Suspect]
     Active Substance: AMLODIPINE BESYLATE
     Indication: HYPERTENSION
     Dosage: 5 MG, DAILY
     Route: 048
     Dates: start: 20160815, end: 20160818
  4. TYLENOL [Concomitant]
     Active Substance: ACETAMINOPHEN
     Dosage: 3 MG, DAILY
     Route: 048
     Dates: start: 20160810, end: 20160818
  5. ZOLOFT [Concomitant]
     Active Substance: SERTRALINE HYDROCHLORIDE
     Dosage: 50 MG DAILY DOSE
     Route: 048
     Dates: start: 20160813, end: 20160822
  6. FORASEQ [Concomitant]
     Active Substance: BUDESONIDE\FORMOTEROL FUMARATE
     Dosage: 400 MCG + 12 MCG, DAILY DOSE
     Route: 048
     Dates: start: 20160810, end: 20160816

REACTIONS (1)
  - Heart rate increased [Recovered/Resolved]

NARRATIVE: CASE EVENT DATE: 201608
